FAERS Safety Report 7174505-7 (Version None)
Quarter: 2010Q4

REPORT INFORMATION
  Report Type: 
  Country: None (occurrence: None)
  Receive Date: 20101202
  Receipt Date: 20101117
  Transmission Date: 20110411
  Serious: Yes (Other)
  Sender: FDA-Public Use
  Company Number: BAYER CASE ID:201015013BYL

PATIENT
  Age: 94 Year
  Sex: Female

DRUGS (3)
  1. AVELOX [Suspect]
     Indication: PNEUMONIA
     Dosage: 400 MG	OTHER
     Route: 050
     Dates: start: 20100915, end: 20100920
  2. PHENYTOIN [Concomitant]
  3. DIAZEPAM [Concomitant]

REACTIONS (1)
  - HYPOGLYCAEMIA [None]
